FAERS Safety Report 7998922-8 (Version None)
Quarter: 2011Q4

REPORT INFORMATION
  Report Type: 
  Country: None (occurrence: None)
  Receive Date: 20111221
  Receipt Date: 20111213
  Transmission Date: 20120403
  Serious: Yes (Death, Life-Threatening)
  Sender: FDA-Public Use
  Company Number: FR-GLAXOSMITHKLINE-B0768794A

PATIENT
  Sex: Female

DRUGS (26)
  1. PERINDOPRIL ERBUMINE [Suspect]
     Indication: PRODUCT USED FOR UNKNOWN INDICATION
     Dosage: 10MG TWICE PER DAY
     Route: 048
     Dates: start: 20110206, end: 20110217
  2. ALDACTONE [Suspect]
     Indication: PRODUCT USED FOR UNKNOWN INDICATION
     Dosage: 50MG PER DAY
     Route: 048
     Dates: start: 20110205, end: 20110216
  3. CYTARABINE [Concomitant]
     Indication: CHEMOTHERAPY
     Dosage: 172MG TWICE PER DAY
     Dates: start: 20110108, end: 20110111
  4. FLUCONAZOLE [Concomitant]
     Dosage: 200MG SEE DOSAGE TEXT
     Dates: start: 20110106, end: 20110204
  5. RITUXIMAB [Concomitant]
     Indication: CHEMOTHERAPY
  6. ETOPOSIDE [Concomitant]
  7. VANCOMYCIN [Concomitant]
     Dates: start: 20110124, end: 20110128
  8. FLAGYL [Concomitant]
     Dates: start: 20110118, end: 20110217
  9. GRANOCYTE [Concomitant]
     Indication: CYTAPHERESIS
  10. MELPHALAN HYDROCHLORIDE [Concomitant]
     Indication: CHEMOTHERAPY
     Dosage: 240MG PER DAY
     Dates: start: 20110112, end: 20110112
  11. PIPERACILLIN AND TAZOBACTAM [Concomitant]
     Dates: start: 20110112, end: 20110124
  12. TIENAM [Concomitant]
     Dates: start: 20110125, end: 20110128
  13. AUGMENTIN '125' [Suspect]
     Indication: PRODUCT USED FOR UNKNOWN INDICATION
     Dosage: 1G THREE TIMES PER DAY
     Route: 048
     Dates: start: 20110129, end: 20110204
  14. CEFTRIAXONE [Suspect]
     Indication: PRODUCT USED FOR UNKNOWN INDICATION
     Dosage: 1G PER DAY
     Route: 042
     Dates: start: 20110209, end: 20110212
  15. AMLODIPINE BESYLATE [Suspect]
     Indication: PRODUCT USED FOR UNKNOWN INDICATION
     Dosage: 5MG TWICE PER DAY
     Route: 048
     Dates: start: 20110205, end: 20110214
  16. CLONAZEPAM [Concomitant]
     Dosage: 5DROP PER DAY
     Route: 048
  17. TOBRAMYCINE [Concomitant]
     Dates: start: 20110116, end: 20110124
  18. BISOPROLOL FUMARATE [Concomitant]
     Dates: start: 20110205
  19. LASIX [Concomitant]
     Dates: start: 20110131
  20. IFOSFAMIDE [Concomitant]
     Indication: CHEMOTHERAPY
  21. AUGMENTIN '125' [Suspect]
     Indication: PRODUCT USED FOR UNKNOWN INDICATION
     Dosage: 1G THREE TIMES PER DAY
     Route: 042
     Dates: start: 20110208, end: 20110209
  22. ETOPOSIDE [Concomitant]
     Indication: CHEMOTHERAPY
     Dosage: 172MG TWICE PER DAY
     Dates: start: 20110108, end: 20110111
  23. VALACYCLOVIR HYDROCHLORIDE [Suspect]
     Indication: PRODUCT USED FOR UNKNOWN INDICATION
     Dosage: 500MG SEE DOSAGE TEXT
     Route: 048
     Dates: start: 20110208, end: 20110217
  24. LEVOFLOXACIN [Suspect]
     Indication: PRODUCT USED FOR UNKNOWN INDICATION
     Dosage: 1000MG PER DAY
     Route: 048
     Dates: start: 20110207, end: 20110215
  25. BICNU [Concomitant]
     Indication: CHEMOTHERAPY
     Dosage: 516MG SINGLE DOSE
     Dates: start: 20110107, end: 20110107
  26. MOZOBIL [Concomitant]
     Indication: CYTAPHERESIS

REACTIONS (4)
  - RENAL FAILURE [None]
  - HEPATITIS CHOLESTATIC [None]
  - DRUG RASH WITH EOSINOPHILIA AND SYSTEMIC SYMPTOMS [None]
  - ACUTE GRAFT VERSUS HOST DISEASE [None]
